FAERS Safety Report 5603141-6 (Version None)
Quarter: 2008Q1

REPORT INFORMATION
  Report Type: 
  Country: None (occurrence: None)
  Receive Date: 20080123
  Receipt Date: 20080109
  Transmission Date: 20080703
  Serious: Yes (Other)
  Sender: FDA-Public Use
  Company Number: CHPA2008US00460

PATIENT
  Age: 45 Year
  Sex: Female

DRUGS (1)
  1. EXCEDRIN (MIGRAINE) [Suspect]
     Indication: MIGRAINE
     Dosage: 8 DF, QD, ORAL
     Route: 048

REACTIONS (10)
  - ASTHENIA [None]
  - CSF TEST ABNORMAL [None]
  - DIZZINESS [None]
  - HEMIPARESIS [None]
  - INCORRECT DOSE ADMINISTERED [None]
  - MASS [None]
  - NAUSEA [None]
  - OPTIC NERVE DISORDER [None]
  - OVERDOSE [None]
  - VISION BLURRED [None]
